FAERS Safety Report 16051276 (Version 1)
Quarter: 2019Q1

REPORT INFORMATION
  Report Type: Spontaneous
  Country: US (occurrence: US)
  Receive Date: 20190308
  Receipt Date: 20190308
  Transmission Date: 20190418
  Serious: No
  Sender: FDA-Public Use
  Company Number: US-TEVA-2019-US-1012164

PATIENT
  Sex: Female

DRUGS (1)
  1. TRINESSA [Suspect]
     Active Substance: ETHINYL ESTRADIOL\NORGESTIMATE
     Indication: CONTRACEPTION
     Dosage: DOSE STRENGTH: .180;.215;.250+.035MG
     Route: 065
     Dates: start: 2018

REACTIONS (5)
  - Rash [Unknown]
  - Urticaria [Unknown]
  - Herpes zoster [Unknown]
  - Product substitution issue [Unknown]
  - Blister [Unknown]
